FAERS Safety Report 22194230 (Version 1)
Quarter: 2023Q2

REPORT INFORMATION
  Report Type: Other
  Country: US (occurrence: US)
  Receive Date: 20230411
  Receipt Date: 20230411
  Transmission Date: 20230722
  Serious: Yes (Death)
  Sender: FDA-Public Use
  Company Number: US-ALVOGEN-2023091040

PATIENT
  Age: 50 Year
  Sex: Female

DRUGS (7)
  1. FENTANYL [Suspect]
     Active Substance: FENTANYL
     Indication: Drug abuse
     Route: 065
  2. ACETYLFENTANYL [Suspect]
     Active Substance: ACETYLFENTANYL
     Indication: Drug abuse
     Route: 065
  3. DEPROPIONYLFENTANYL [Suspect]
     Active Substance: DEPROPIONYLFENTANYL
     Indication: Drug abuse
     Route: 065
  4. COCAINE [Suspect]
     Active Substance: COCAINE
     Indication: Drug abuse
     Route: 065
  5. PROMETHAZINE [Suspect]
     Active Substance: PROMETHAZINE HYDROCHLORIDE
     Indication: Drug abuse
     Route: 065
  6. ACRYLFENTANYL [Suspect]
     Active Substance: ACRYLFENTANYL
     Indication: Drug abuse
     Route: 065
  7. QUININE [Suspect]
     Active Substance: QUININE
     Indication: Drug abuse
     Route: 065

REACTIONS (4)
  - Cardiac arrest [Fatal]
  - Respiratory arrest [Fatal]
  - Drug abuse [Fatal]
  - Prescription drug used without a prescription [Unknown]
